FAERS Safety Report 10950904 (Version 2)
Quarter: 2015Q1

REPORT INFORMATION
  Report Type: Report from Study
  Country: US (occurrence: US)
  Receive Date: 20150324
  Receipt Date: 20150331
  Transmission Date: 20150721
  Serious: Yes (Death)
  Sender: FDA-Public Use
  Company Number: US-EXELIXIS-CABO-15005239

PATIENT
  Age: 66 Year
  Sex: Female
  Weight: 70.5 kg

DRUGS (8)
  1. COREG [Concomitant]
     Active Substance: CARVEDILOL
  2. PRILOSEC [Concomitant]
     Active Substance: OMEPRAZOLE MAGNESIUM
  3. CABOZANTINIB [Suspect]
     Active Substance: CABOZANTINIB
     Indication: LUNG NEOPLASM MALIGNANT
     Dosage: 60 MG, QD
     Route: 048
     Dates: start: 20150217
  4. LOSARTAN [Concomitant]
     Active Substance: LOSARTAN
  5. DECADRON [Concomitant]
     Active Substance: DEXAMETHASONE
  6. KEPPRA [Concomitant]
     Active Substance: LEVETIRACETAM
  7. ZOFRAN [Concomitant]
     Active Substance: ONDANSETRON HYDROCHLORIDE
  8. ATIVAN [Concomitant]
     Active Substance: LORAZEPAM

REACTIONS (6)
  - Pruritus [Unknown]
  - Malignant neoplasm progression [Fatal]
  - Constipation [Unknown]
  - Off label use [Unknown]
  - Throat irritation [Unknown]
  - Urinary tract infection [Unknown]

NARRATIVE: CASE EVENT DATE: 20150221
